FAERS Safety Report 19178241 (Version 2)
Quarter: 2024Q4

REPORT INFORMATION
  Report Type: Spontaneous
  Country: ES (occurrence: ES)
  Receive Date: 20210426
  Receipt Date: 20241113
  Transmission Date: 20250115
  Serious: Yes (Disabling, Other)
  Sender: AUROBINDO
  Company Number: ES-AEMPS-813873

PATIENT
  Age: 33 Year
  Sex: Male
  Weight: 82 kg

DRUGS (1)
  1. FINASTERIDE [Suspect]
     Active Substance: FINASTERIDE
     Indication: Alopecia
     Dosage: 1 MILLIGRAM, DAILY
     Route: 048
     Dates: start: 20120601, end: 20121201

REACTIONS (8)
  - Erectile dysfunction [Recovering/Resolving]
  - Suicidal ideation [Recovered/Resolved]
  - Depression [Recovering/Resolving]
  - Semen analysis abnormal [Recovering/Resolving]
  - Panic reaction [Recovered/Resolved]
  - Anhedonia [Not Recovered/Not Resolved]
  - Anxiety [Recovering/Resolving]
  - Disturbance in attention [Recovering/Resolving]

NARRATIVE: CASE EVENT DATE: 20120101
